FAERS Safety Report 4656044-8 (Version None)
Quarter: 2005Q2

REPORT INFORMATION
  Report Type: 
  Country: None (occurrence: None)
  Receive Date: 20050506
  Receipt Date: 20050426
  Transmission Date: 20051028
  Serious: Yes (Other)
  Sender: FDA-Public Use
  Company Number: 2005065237

PATIENT
  Age: 45 Year
  Sex: Female
  Weight: 81.6475 kg

DRUGS (1)
  1. ROLAIDS [Suspect]
     Indication: DYSPEPSIA
     Dosage: 2 TABLETS NIGHTLY, ORAL
     Route: 048

REACTIONS (3)
  - CYSTITIS [None]
  - RENAL CELL CARCINOMA STAGE UNSPECIFIED [None]
  - UROGRAPHY ABNORMAL [None]
